FAERS Safety Report 23059248 (Version 1)
Quarter: 2023Q4

REPORT INFORMATION
  Report Type: Spontaneous
  Country: SE (occurrence: SE)
  Receive Date: 20231012
  Receipt Date: 20231012
  Transmission Date: 20240110
  Serious: Yes (Other)
  Sender: FDA-Public Use
  Company Number: None

PATIENT
  Age: 61 Year
  Sex: Female

DRUGS (3)
  1. RISEDRONATE SODIUM [Suspect]
     Active Substance: RISEDRONATE SODIUM
     Indication: Osteoporosis
     Dosage: 35 MILLIGRAM, QW, FILM-COATED TABLET
     Route: 065
     Dates: start: 20161014, end: 20181122
  2. ALENDRONATE SODIUM [Suspect]
     Active Substance: ALENDRONATE SODIUM
     Indication: Osteoporosis
     Dosage: UNK UNK, QW
     Route: 065
     Dates: start: 20140114, end: 20161014
  3. CORTISONE ACETATE [Concomitant]
     Active Substance: CORTISONE ACETATE
     Dosage: UNK
     Route: 065

REACTIONS (4)
  - Jaw fistula [Recovered/Resolved]
  - Bone sequestrum [Recovering/Resolving]
  - Impaired healing [Recovering/Resolving]
  - Bone formation decreased [Recovering/Resolving]

NARRATIVE: CASE EVENT DATE: 20181001
